FAERS Safety Report 7408623-2 (Version None)
Quarter: 2011Q2

REPORT INFORMATION
  Report Type: 
  Country: None (occurrence: None)
  Receive Date: 20110412
  Receipt Date: 20110330
  Transmission Date: 20111010
  Serious: Yes (Hospitalization, Other)
  Sender: FDA-Public Use
  Company Number: PHHY2010FR19856

PATIENT
  Sex: Male
  Weight: 60 kg

DRUGS (8)
  1. ARANESP [Concomitant]
  2. TAREG [Concomitant]
     Indication: HYPERTENSION
     Dosage: 80 MG DAILY
     Route: 048
  3. AMN107 [Suspect]
     Indication: CHRONIC MYELOID LEUKAEMIA
     Dosage: 400 MG, BID
     Route: 048
     Dates: start: 20080924
  4. LEXOMIL [Concomitant]
     Dosage: 0.75 DF, QD
  5. KARDEGIC [Concomitant]
     Indication: ARTERIAL DISORDER
     Dosage: 75 MG, UNK
     Dates: start: 20091101
  6. TAHOR [Concomitant]
     Indication: ARTERIAL DISORDER
     Dosage: 80 MG, DAILY
     Dates: start: 20091101
  7. PLAVIX [Concomitant]
     Indication: ARTERIAL DISORDER
     Dosage: 75 MG, DAILY
     Dates: start: 20091101
  8. NEXIUM [Concomitant]
     Dosage: 40 MG, UNK
     Dates: start: 20091101

REACTIONS (10)
  - RASH ERYTHEMATOUS [None]
  - ARTERIAL THROMBOSIS LIMB [None]
  - DYSLIPIDAEMIA [None]
  - NEUTROPHILIA [None]
  - SKIN ULCER [None]
  - ARTERIAL OCCLUSIVE DISEASE [None]
  - ARTERITIS [None]
  - PERIPHERAL ISCHAEMIA [None]
  - CAROTID ARTERY STENOSIS [None]
  - OSTEONECROSIS [None]
